FAERS Safety Report 7110594-3 (Version None)
Quarter: 2010Q4

REPORT INFORMATION
  Report Type: 
  Country: None (occurrence: None)
  Receive Date: 20101118
  Receipt Date: 20101108
  Transmission Date: 20110411
  Serious: Yes (Hospitalization)
  Sender: FDA-Public Use
  Company Number: US-ROCHE-740634

PATIENT
  Sex: Female
  Weight: 43.5 kg

DRUGS (3)
  1. BEVACIZUMAB [Suspect]
     Indication: NON-SMALL CELL LUNG CANCER
     Dosage: FREQUENCY: ON DAY 1 OF EVERY 21 DAY CYCLE, LAST DOSE PRIOR TO SAE ON 24 SEP 2010.
     Route: 042
     Dates: start: 20100903, end: 20101014
  2. PEMETREXED [Suspect]
     Indication: NON-SMALL CELL LUNG CANCER
     Dosage: FREQUENCY: ON DAY 1 OF EVERY 21 DAY CYCLE, LAST DOSE PRIOR TO SAE ON 24 SEP 2010.
     Route: 042
     Dates: start: 20100903, end: 20101014
  3. CARBOPLATIN [Suspect]
     Indication: NON-SMALL CELL LUNG CANCER
     Dosage: DOSE LEVEL: 6 AUC, FREQUENCY: ON DAY 1 OF EVERY 21 DAY CYCLE, LAST DOSE PRIOR TO SAE ON 24 SEP 2010.
     Route: 042
     Dates: start: 20100903, end: 20101004

REACTIONS (1)
  - PNEUMOTHORAX [None]
